FAERS Safety Report 23828901 (Version 1)
Quarter: 2024Q2

REPORT INFORMATION
  Report Type: Spontaneous
  Country: CA (occurrence: CA)
  Receive Date: 20240508
  Receipt Date: 20240508
  Transmission Date: 20240716
  Serious: Yes (Hospitalization)
  Sender: FDA-Public Use
  Company Number: CA-TEVA-VS-3195204

PATIENT
  Age: 14 Year
  Sex: Male
  Weight: 70 kg

DRUGS (3)
  1. VINCRISTINE SULFATE [Suspect]
     Active Substance: VINCRISTINE SULFATE
     Indication: Hodgkin^s disease nodular sclerosis stage III
     Dosage: TIME INTERVAL: CYCLICAL: DOSAGE: 1 MG/ML SOLUTION INTRAVENOUS, INJECTION-LIQ IV 1MG/ML
     Route: 042
  2. SULFAMETHOXAZOLE\TRIMETHOPRIM [Concomitant]
     Active Substance: SULFAMETHOXAZOLE\TRIMETHOPRIM
     Indication: Product used for unknown indication
     Route: 065
  3. BLEOMYCIN [Suspect]
     Active Substance: BLEOMYCIN SULFATE
     Indication: Hodgkin^s disease nodular sclerosis stage III
     Dosage: TIME INTERVAL: CYCLICAL: FOR INJECTION, POWDER FOR SOLUTION INTRAMUSCULAR
     Route: 042

REACTIONS (3)
  - Pyrexia [Recovered/Resolved]
  - Headache [Recovered/Resolved]
  - Chills [Recovered/Resolved]
